FAERS Safety Report 4266291-5 (Version None)
Quarter: 2004Q1

REPORT INFORMATION
  Report Type: 
  Country: None (occurrence: None)
  Receive Date: 20040107
  Receipt Date: 20031104
  Transmission Date: 20041129
  Serious: Yes (Life-Threatening, Disabling, Other)
  Sender: FDA-Public Use
  Company Number: WAES 0311USA00474

PATIENT
  Age: 68 Year
  Sex: Female

DRUGS (2)
  1. PEPCID [Suspect]
     Route: 042
     Dates: start: 20030919, end: 20031105
  2. PRIMPERAN TAB [Suspect]
     Route: 042
     Dates: start: 20030926, end: 20031119

REACTIONS (3)
  - DEPRESSED LEVEL OF CONSCIOUSNESS [None]
  - HYPOTENSION [None]
  - RESPIRATORY DEPRESSION [None]
